FAERS Safety Report 5587076-3 (Version None)
Quarter: 2008Q1

REPORT INFORMATION
  Report Type: 
  Country: None (occurrence: None)
  Receive Date: 20080110
  Receipt Date: 20080103
  Transmission Date: 20080703
  Serious: Yes (Other)
  Sender: FDA-Public Use
  Company Number: B0361707A

PATIENT
  Age: 24 Year
  Sex: Female

DRUGS (3)
  1. PAROXETINE HYDROCHLORIDE [Suspect]
     Route: 065
     Dates: start: 19941205
  2. HOMEOPATHIC REMEDY [Concomitant]
  3. PROZAC [Concomitant]
     Dates: start: 20030419

REACTIONS (38)
  - ABNORMAL DREAMS [None]
  - ADVERSE DRUG REACTION [None]
  - AGGRESSION [None]
  - AGITATION [None]
  - ANGER [None]
  - ANXIETY [None]
  - ARTHRALGIA [None]
  - BIPOLAR I DISORDER [None]
  - BLINDNESS TRANSIENT [None]
  - BLOOD GLUCOSE FLUCTUATION [None]
  - CONSTIPATION [None]
  - DEPRESSION [None]
  - DIARRHOEA [None]
  - DISTURBANCE IN ATTENTION [None]
  - DRUG WITHDRAWAL SYNDROME [None]
  - DRY MOUTH [None]
  - FATIGUE [None]
  - FEAR [None]
  - FEELING ABNORMAL [None]
  - FEELING OF BODY TEMPERATURE CHANGE [None]
  - GASTROOESOPHAGEAL REFLUX DISEASE [None]
  - HALLUCINATION, AUDITORY [None]
  - HYPERHIDROSIS [None]
  - HYPERSOMNIA [None]
  - HYPOAESTHESIA [None]
  - HYPOAESTHESIA FACIAL [None]
  - HYPOVENTILATION [None]
  - IRRITABILITY [None]
  - LIMB DISCOMFORT [None]
  - MOOD SWINGS [None]
  - NIGHTMARE [None]
  - ORAL PAIN [None]
  - PALPITATIONS [None]
  - PARAESTHESIA [None]
  - PERSONALITY CHANGE [None]
  - POLYDIPSIA [None]
  - SLUGGISHNESS [None]
  - THIRST [None]
